FAERS Safety Report 8423582-1 (Version None)
Quarter: 2012Q2

REPORT INFORMATION
  Report Type: 
  Country: None (occurrence: None)
  Receive Date: 20120608
  Receipt Date: 20120530
  Transmission Date: 20120825
  Serious: Yes (Hospitalization)
  Sender: FDA-Public Use
  Company Number: JP-VERTEX PHARMACEUTICALS INC.-AE-2012-008334

PATIENT
  Age: 70 Year
  Sex: Female

DRUGS (3)
  1. TELAVIC (TELAPREVIR) [Suspect]
     Indication: HEPATITIS C
     Route: 048
     Dates: start: 20120522, end: 20120528
  2. PEG-INTRON [Concomitant]
     Route: 058
     Dates: start: 20120522, end: 20120528
  3. REBETOL [Concomitant]
     Route: 048
     Dates: start: 20120522, end: 20120528

REACTIONS (1)
  - RASH [None]
